FAERS Safety Report 5657966-1 (Version None)
Quarter: 2008Q1

REPORT INFORMATION
  Report Type: 
  Country: None (occurrence: None)
  Receive Date: 20080310
  Receipt Date: 20080306
  Transmission Date: 20080703
  Serious: Yes (Life-Threatening, Hospitalization)
  Sender: FDA-Public Use
  Company Number: PHNU2008DE00857

PATIENT
  Age: 70 Year
  Sex: Female
  Weight: 80 kg

DRUGS (12)
  1. BELOC-ZOC FORTE [Concomitant]
     Dosage: 1 DF, QD
  2. SPIRONOLACTONE [Concomitant]
     Dosage: 1 DF, QD
  3. TOREM [Concomitant]
     Dosage: 1 DF, QD
  4. ASPIRIN [Concomitant]
     Dosage: 1 DF, QD
  5. FLUVASTATIN [Concomitant]
     Indication: ARTERIOSCLEROSIS
     Dosage: 1 DF, QD
  6. AMARYL [Concomitant]
     Dosage: 1 DF, QD
  7. PANTOZOL [Concomitant]
     Dosage: 1 DF, BID
  8. BASAL-H-INSULIN [Concomitant]
     Dosage: 6 IU/D
  9. ACE INHIBITOR NOS [Concomitant]
  10. ANGIOTENSIN II ANTAGONISTS [Concomitant]
  11. BETA BLOCKING AGENTS [Concomitant]
  12. RASILEZ [Suspect]
     Indication: HYPERTENSION
     Dosage: 150 MG, QD
     Route: 048
     Dates: start: 20071105

REACTIONS (50)
  - ABDOMINAL PAIN [None]
  - ACUTE MYOCARDIAL INFARCTION [None]
  - ANAEMIA [None]
  - ANASTOMOTIC ULCER [None]
  - ATRIAL FIBRILLATION [None]
  - BLOOD ALBUMIN DECREASED [None]
  - BLOOD CREATININE INCREASED [None]
  - BLOOD LACTIC ACID INCREASED [None]
  - BRAIN NATRIURETIC PEPTIDE INCREASED [None]
  - C-REACTIVE PROTEIN INCREASED [None]
  - CARDIAC ENZYMES INCREASED [None]
  - CARDIOVASCULAR DISORDER [None]
  - CEREBROVASCULAR ACCIDENT [None]
  - COLD SWEAT [None]
  - COLECTOMY [None]
  - CYANOSIS [None]
  - DIARRHOEA [None]
  - DYSPNOEA [None]
  - ECTOPIA CORDIS [None]
  - HAEMATEMESIS [None]
  - HAEMATOCRIT DECREASED [None]
  - HEMIPLEGIA [None]
  - HYPERGLYCAEMIA [None]
  - HYPOKALAEMIA [None]
  - HYPOVOLAEMIA [None]
  - IMPAIRED HEALING [None]
  - INTERNATIONAL NORMALISED RATIO INCREASED [None]
  - INTESTINAL GANGRENE [None]
  - INTESTINAL RESECTION [None]
  - LEUKOCYTOSIS [None]
  - LIPASE INCREASED [None]
  - MESENTERIC ARTERY EMBOLISM [None]
  - METABOLIC ACIDOSIS [None]
  - OXYGEN SATURATION DECREASED [None]
  - PARENTERAL NUTRITION [None]
  - PERIPHERAL EMBOLISM [None]
  - PERIPHERAL ISCHAEMIA [None]
  - PLEURAL EFFUSION [None]
  - PNEUMONIA [None]
  - POST PROCEDURAL HAEMATOMA [None]
  - POST PROCEDURAL HAEMORRHAGE [None]
  - POST PROCEDURAL INFECTION [None]
  - POSTOPERATIVE WOUND INFECTION [None]
  - RESPIRATORY FAILURE [None]
  - SHORT-BOWEL SYNDROME [None]
  - SUPRAVENTRICULAR TACHYCARDIA [None]
  - THROMBOSIS [None]
  - TRANSFUSION [None]
  - TROPONIN I INCREASED [None]
  - VOMITING [None]
